FAERS Safety Report 17236823 (Version 1)
Quarter: 2019Q4

REPORT INFORMATION
  Report Type: Spontaneous
  Country: US (occurrence: US)
  Receive Date: 20191211
  Receipt Date: 20191211
  Transmission Date: 20200122
  Serious: No
  Sender: FDA-Public Use
  Company Number: None

PATIENT
  Sex: Female

DRUGS (1)
  1. TALTZ [Suspect]
     Active Substance: IXEKIZUMAB
     Indication: PSORIASIS
     Route: 058
     Dates: start: 201907

REACTIONS (6)
  - Joint range of motion decreased [None]
  - Musculoskeletal pain [None]
  - Product supply issue [None]
  - Dysaesthesia [None]
  - Skin mass [None]
  - Skin disorder [None]
